FAERS Safety Report 5235393-9 (Version None)
Quarter: 2007Q1

REPORT INFORMATION
  Report Type: 
  Country: None (occurrence: None)
  Receive Date: 20061208
  Receipt Date: 20060707
  Transmission Date: 20070707
  Serious: Yes (Other)
  Sender: FDA-Public Use
  Company Number: 2006UW14054

PATIENT
  Age: 82 Year
  Sex: Female
  Weight: 81.646 kg

DRUGS (7)
  1. CRESTOR [Suspect]
     Indication: BLOOD CHOLESTEROL INCREASED
     Dosage: 5 MG PO
     Route: 048
  2. GABAPENTIN [Concomitant]
  3. METFORMIN HCL [Concomitant]
  4. AVANDIA [Concomitant]
  5. TIAZAC [Concomitant]
  6. LISINOPRIL [Concomitant]
  7. PRANDIN [Concomitant]

REACTIONS (4)
  - CONSTIPATION [None]
  - FATIGUE [None]
  - RESIDUAL URINE VOLUME [None]
  - VISUAL ACUITY REDUCED [None]
